FAERS Safety Report 24335495 (Version 11)
Quarter: 2025Q3

REPORT INFORMATION
  Report Type: Report from Study
  Country: EU (occurrence: EU)
  Receive Date: 20240919
  Receipt Date: 20250718
  Transmission Date: 20251020
  Serious: Yes (Death, Hospitalization, Other)
  Sender: ABBVIE
  Company Number: EU-ABBVIE-5499045

PATIENT
  Age: 82 Year
  Sex: Male
  Weight: 78 kg

DRUGS (102)
  1. VENETOCLAX [Suspect]
     Active Substance: VENETOCLAX
     Indication: Acute myeloid leukaemia
     Route: 048
     Dates: start: 20231228, end: 20240124
  2. VENETOCLAX [Suspect]
     Active Substance: VENETOCLAX
     Indication: Acute myeloid leukaemia
     Route: 048
     Dates: start: 20231127, end: 20231224
  3. VENETOCLAX [Suspect]
     Active Substance: VENETOCLAX
     Indication: Acute myeloid leukaemia
     Route: 048
     Dates: start: 20240222, end: 20240320
  4. VENETOCLAX [Suspect]
     Active Substance: VENETOCLAX
     Indication: Acute myeloid leukaemia
     Route: 048
     Dates: start: 20240321, end: 20240417
  5. VENETOCLAX [Suspect]
     Active Substance: VENETOCLAX
     Indication: Acute myeloid leukaemia
     Route: 048
     Dates: start: 20230909, end: 20230909
  6. VENETOCLAX [Suspect]
     Active Substance: VENETOCLAX
     Indication: Acute myeloid leukaemia
     Route: 048
     Dates: start: 20240125, end: 20240221
  7. VENETOCLAX [Suspect]
     Active Substance: VENETOCLAX
     Indication: Acute myeloid leukaemia
     Route: 048
     Dates: start: 20230907, end: 20230907
  8. VENETOCLAX [Suspect]
     Active Substance: VENETOCLAX
     Indication: Acute myeloid leukaemia
     Route: 048
     Dates: start: 20240516, end: 20240522
  9. VENETOCLAX [Suspect]
     Active Substance: VENETOCLAX
     Indication: Acute myeloid leukaemia
     Route: 048
     Dates: start: 20230910, end: 20230926
  10. VENETOCLAX [Suspect]
     Active Substance: VENETOCLAX
     Indication: Acute myeloid leukaemia
     Route: 048
     Dates: start: 20240620, end: 20240623
  11. VENETOCLAX [Suspect]
     Active Substance: VENETOCLAX
     Indication: Acute myeloid leukaemia
     Route: 048
     Dates: start: 20240624, end: 20240707
  12. VENETOCLAX [Suspect]
     Active Substance: VENETOCLAX
     Indication: Acute myeloid leukaemia
     Route: 048
     Dates: start: 20230908, end: 20230908
  13. VENETOCLAX [Suspect]
     Active Substance: VENETOCLAX
     Indication: Acute myeloid leukaemia
     Route: 048
     Dates: start: 20230927, end: 20231019
  14. VENETOCLAX [Suspect]
     Active Substance: VENETOCLAX
     Indication: Acute myeloid leukaemia
     Route: 048
     Dates: start: 20231020, end: 20231116
  15. VENETOCLAX [Suspect]
     Active Substance: VENETOCLAX
     Indication: Acute myeloid leukaemia
     Route: 048
     Dates: start: 20240418, end: 20240515
  16. VENETOCLAX [Suspect]
     Active Substance: VENETOCLAX
     Indication: Acute myeloid leukaemia
     Route: 048
     Dates: start: 20240523, end: 20240605
  17. VENETOCLAX [Suspect]
     Active Substance: VENETOCLAX
     Indication: Acute myeloid leukaemia
     Route: 048
     Dates: start: 20240606, end: 20240619
  18. VENETOCLAX [Suspect]
     Active Substance: VENETOCLAX
     Indication: Acute myeloid leukaemia
     Route: 048
     Dates: start: 20240708, end: 20240721
  19. VENETOCLAX [Suspect]
     Active Substance: VENETOCLAX
     Indication: Acute myeloid leukaemia
     Route: 048
     Dates: start: 20240722, end: 20240726
  20. VENETOCLAX [Suspect]
     Active Substance: VENETOCLAX
     Indication: Acute myeloid leukaemia
     Route: 048
     Dates: start: 20231120, end: 20231126
  21. VENETOCLAX [Suspect]
     Active Substance: VENETOCLAX
     Indication: Acute myeloid leukaemia
     Route: 048
     Dates: start: 20231225, end: 20231227
  22. VENETOCLAX [Suspect]
     Active Substance: VENETOCLAX
     Indication: Acute myeloid leukaemia
     Route: 048
     Dates: start: 20231117, end: 20231119
  23. VENETOCLAX [Suspect]
     Active Substance: VENETOCLAX
     Indication: Acute myeloid leukaemia
     Route: 048
     Dates: start: 20240805, end: 20240818
  24. VIDAZA [Concomitant]
     Active Substance: AZACITIDINE
     Indication: Chronic lymphocytic leukaemia
     Dates: start: 20231228, end: 20231229
  25. VIDAZA [Concomitant]
     Active Substance: AZACITIDINE
     Indication: Chronic lymphocytic leukaemia
     Dates: start: 20240226, end: 20240228
  26. VIDAZA [Concomitant]
     Active Substance: AZACITIDINE
     Indication: Chronic lymphocytic leukaemia
     Dates: start: 20231127, end: 20231201
  27. VIDAZA [Concomitant]
     Active Substance: AZACITIDINE
     Indication: Chronic lymphocytic leukaemia
     Dates: start: 20240222, end: 20240223
  28. VIDAZA [Concomitant]
     Active Substance: AZACITIDINE
     Indication: Chronic lymphocytic leukaemia
     Dates: start: 20240129, end: 20240131
  29. VIDAZA [Concomitant]
     Active Substance: AZACITIDINE
     Indication: Chronic lymphocytic leukaemia
     Dates: start: 20240125, end: 20240126
  30. VIDAZA [Concomitant]
     Active Substance: AZACITIDINE
     Indication: Chronic lymphocytic leukaemia
     Dates: start: 20240325, end: 20240327
  31. VIDAZA [Concomitant]
     Active Substance: AZACITIDINE
     Indication: Chronic lymphocytic leukaemia
     Dates: start: 20240321, end: 20240322
  32. VIDAZA [Concomitant]
     Active Substance: AZACITIDINE
     Indication: Chronic lymphocytic leukaemia
     Dates: start: 20240101, end: 20240103
  33. VIDAZA [Concomitant]
     Active Substance: AZACITIDINE
     Indication: Chronic lymphocytic leukaemia
     Dates: start: 20240422, end: 20240424
  34. VIDAZA [Concomitant]
     Active Substance: AZACITIDINE
     Indication: Chronic lymphocytic leukaemia
     Dates: start: 20240418, end: 20240419
  35. VIDAZA [Concomitant]
     Active Substance: AZACITIDINE
     Indication: Chronic lymphocytic leukaemia
     Dates: start: 20231020, end: 20231024
  36. VIDAZA [Concomitant]
     Active Substance: AZACITIDINE
     Indication: Chronic lymphocytic leukaemia
     Dates: start: 20240624, end: 20240628
  37. VIDAZA [Concomitant]
     Active Substance: AZACITIDINE
     Indication: Chronic lymphocytic leukaemia
     Dates: start: 20230907, end: 20230913
  38. VIDAZA [Concomitant]
     Active Substance: AZACITIDINE
     Indication: Chronic lymphocytic leukaemia
     Dates: start: 20240527, end: 20240529
  39. VIDAZA [Concomitant]
     Active Substance: AZACITIDINE
     Indication: Chronic lymphocytic leukaemia
     Dates: start: 20240523, end: 20240524
  40. VIDAZA [Concomitant]
     Active Substance: AZACITIDINE
     Indication: Chronic lymphocytic leukaemia
     Dates: start: 20240722, end: 20240726
  41. Dulcoclax [Concomitant]
     Indication: Product used for unknown indication
     Dosage: FREQUENCY TEXT: DAILY
     Route: 048
     Dates: start: 20240908, end: 20240908
  42. Andofin [Concomitant]
     Indication: Product used for unknown indication
     Route: 048
     Dates: start: 20240914, end: 20240915
  43. TAMSULOSIN HYDROCHLORIDE [Concomitant]
     Active Substance: TAMSULOSIN HYDROCHLORIDE
     Indication: Benign prostatic hyperplasia
     Route: 048
     Dates: end: 20240915
  44. G Csfpcgen [Concomitant]
     Indication: Supportive care
     Dates: start: 20240913, end: 20240914
  45. G Csfpcgen [Concomitant]
     Indication: Supportive care
     Dates: start: 20240910, end: 20240912
  46. G Csfpcgen [Concomitant]
     Indication: Supportive care
     Dates: start: 20240813, end: 20240907
  47. G Csfpcgen [Concomitant]
     Indication: Supportive care
     Dosage: 0.5 MG
     Dates: start: 20231128, end: 20240812
  48. G Csfpcgen [Concomitant]
     Indication: Supportive care
     Dates: start: 20240908, end: 20240908
  49. AMOXICILLIN\CLAVULANATE POTASSIUM [Concomitant]
     Active Substance: AMOXICILLIN\CLAVULANATE POTASSIUM
     Indication: Antibiotic therapy
     Dosage: 875/125MG
     Route: 048
     Dates: start: 20231003
  50. AUGMENTIN [Concomitant]
     Active Substance: AMOXICILLIN\CLAVULANATE POTASSIUM
     Indication: Antibiotic therapy
     Dosage: 875/125MG
     Route: 048
     Dates: start: 20230914, end: 20230927
  51. Elomel [Concomitant]
     Indication: Product used for unknown indication
     Dosage: FREQUENCY TEXT: DAILY
     Route: 042
     Dates: start: 20240907, end: 20240907
  52. Elomel [Concomitant]
     Indication: Product used for unknown indication
     Route: 042
     Dates: start: 20240908, end: 20240914
  53. LOVENOX [Concomitant]
     Active Substance: ENOXAPARIN SODIUM
     Indication: Thrombosis prophylaxis
     Route: 058
     Dates: start: 20230930, end: 20231002
  54. ESCITALOPRAM [Concomitant]
     Active Substance: ESCITALOPRAM OXALATE
     Indication: Depression
     Route: 048
     Dates: start: 20240909, end: 20240915
  55. ESCITALOPRAM [Concomitant]
     Active Substance: ESCITALOPRAM OXALATE
     Indication: Depression
     Route: 048
     Dates: start: 20240904, end: 20240908
  56. PROSCAR [Concomitant]
     Active Substance: FINASTERIDE
     Indication: Benign prostatic hyperplasia
     Route: 048
     Dates: start: 20230831, end: 20240913
  57. ONDANSETRON [Concomitant]
     Active Substance: ONDANSETRON
     Indication: Nausea
     Dates: start: 20230907
  58. ONDANSETRON [Concomitant]
     Active Substance: ONDANSETRON
     Indication: Nausea
     Route: 048
     Dates: start: 20240722, end: 20240726
  59. ONDANSETRON [Concomitant]
     Active Substance: ONDANSETRON
     Indication: Nausea
     Dosage: FIRST ADMIN DATE 2024
     Route: 048
  60. CHOLECALCIFEROL [Concomitant]
     Active Substance: CHOLECALCIFEROL
     Indication: Supportive care
     Dosage: FREQUENCY TEXT: WEEKLY (FRIDAYS)
     Route: 048
     Dates: start: 20230901, end: 20240913
  61. MYCOSTATIN [Concomitant]
     Active Substance: NYSTATIN
     Indication: Fungal infection
     Route: 048
     Dates: start: 20240907, end: 20240913
  62. ACETAMINOPHEN [Concomitant]
     Active Substance: ACETAMINOPHEN
     Indication: Pain management
     Route: 048
     Dates: start: 20230904, end: 20240915
  63. GINKGO [Concomitant]
     Active Substance: GINKGO
     Indication: Cognitive disorder
     Dosage: ONCE DAILY IN THE MORNING?UNKNOWN START DATE
     Route: 048
     Dates: end: 20240909
  64. BROMAZEPAM [Concomitant]
     Active Substance: BROMAZEPAM
     Indication: Anxiety disorder
     Dosage: FREQUENCY TEXT: 3MG IN THE EVENING
     Route: 048
     Dates: start: 20230830, end: 20240915
  65. BROMAZEPAM [Concomitant]
     Active Substance: BROMAZEPAM
     Indication: Anxiety disorder
  66. BROMAZEPAM [Concomitant]
     Active Substance: BROMAZEPAM
     Indication: Anxiety disorder
  67. DEXIBUPROFEN [Concomitant]
     Active Substance: DEXIBUPROFEN
     Indication: Analgesic therapy
     Route: 048
     Dates: start: 20230928
  68. Paspertin [Concomitant]
     Indication: Nausea
     Route: 048
     Dates: start: 20240907, end: 20240912
  69. Paspertin [Concomitant]
     Indication: Nausea
     Route: 042
     Dates: start: 20240913, end: 20240915
  70. Paspertin [Concomitant]
     Indication: Nausea
     Route: 048
     Dates: start: 20230907
  71. PERFALGAN [Concomitant]
     Active Substance: ACETAMINOPHEN
     Indication: Pyrexia
     Dosage: FREQUENCY TEXT: SINGLE ADMINISTRATION?FREQUENCY TEXT: DAILY
     Route: 042
     Dates: start: 20240907, end: 20240907
  72. PANTOPRAZOLE SODIUM [Concomitant]
     Active Substance: PANTOPRAZOLE SODIUM
     Indication: Gastric ulcer
     Route: 048
     Dates: start: 20230911, end: 20240915
  73. CANDESARTAN [Concomitant]
     Active Substance: CANDESARTAN
     Indication: Hypertension
     Dosage: ONCE DAILY (IN THE AFTERNOON)
     Route: 048
     Dates: end: 20240915
  74. Novalgin [Concomitant]
     Indication: Analgesic therapy
     Route: 042
     Dates: start: 20240913, end: 20240915
  75. Novalgin [Concomitant]
     Indication: Analgesic therapy
     Dates: start: 20240913, end: 20240913
  76. Novalgin [Concomitant]
     Indication: Analgesic therapy
     Route: 048
     Dates: start: 20240907
  77. ALBUMIN TANNATE [Concomitant]
     Active Substance: ALBUMIN TANNATE
     Indication: Hypersensitivity
     Route: 048
     Dates: start: 20230909, end: 20240915
  78. TAZOBACTAM [Concomitant]
     Active Substance: TAZOBACTAM
     Indication: Infection
     Route: 042
     Dates: start: 20240907, end: 20240913
  79. TAZOBACTAM [Concomitant]
     Active Substance: TAZOBACTAM
     Indication: Infection
     Route: 042
     Dates: start: 20230910, end: 20230913
  80. TAZOBACTAM [Concomitant]
     Active Substance: TAZOBACTAM
     Indication: Infection
     Route: 042
     Dates: start: 20230928, end: 20231002
  81. TAZOBACTAM [Concomitant]
     Active Substance: TAZOBACTAM
     Indication: Infection
     Route: 042
     Dates: start: 20240913, end: 20240914
  82. CEFTRIAXONE [Concomitant]
     Active Substance: CEFTRIAXONE
     Indication: Antibiotic therapy
     Route: 042
     Dates: start: 20230909, end: 20230909
  83. ENOXAPARIN SODIUM [Concomitant]
     Active Substance: ENOXAPARIN SODIUM
     Indication: Thrombosis prophylaxis
     Route: 058
     Dates: start: 20230831, end: 20230908
  84. ERYTHROPOIETIN [Concomitant]
     Active Substance: ERYTHROPOIETIN
     Indication: Product used for unknown indication
     Dosage: FREQUENCY TEXT: WEEKLY
     Dates: start: 20240624, end: 20240913
  85. FILGRASTIM [Concomitant]
     Active Substance: FILGRASTIM
     Indication: Neutropenia
     Dates: start: 20240908
  86. HYDROXYCHLOROQUINE [Concomitant]
     Active Substance: HYDROXYCHLOROQUINE
     Indication: Chronic cutaneous lupus erythematosus
     Route: 048
     Dates: start: 20230428, end: 20230816
  87. LYNPARZA [Concomitant]
     Active Substance: OLAPARIB
     Indication: Ovarian cancer
  88. LYNPARZA [Concomitant]
     Active Substance: OLAPARIB
     Indication: Ovarian cancer
     Dosage: FREQUENCY TEXT: PAUSED
  89. GRANULOCYTE COLONY-STIMULATING FACTOR NOS [Concomitant]
     Active Substance: GRANULOCYTE COLONY-STIMULATING FACTOR NOS
     Indication: Neutropenia
     Dates: start: 20240910, end: 20240912
  90. GRANULOCYTE COLONY-STIMULATING FACTOR NOS [Concomitant]
     Active Substance: GRANULOCYTE COLONY-STIMULATING FACTOR NOS
     Indication: Neutropenia
     Dates: start: 20240813, end: 20240907
  91. GRANULOCYTE COLONY-STIMULATING FACTOR NOS [Concomitant]
     Active Substance: GRANULOCYTE COLONY-STIMULATING FACTOR NOS
     Indication: Neutropenia
     Dates: start: 20240913, end: 20240914
  92. GRANULOCYTE COLONY-STIMULATING FACTOR NOS [Concomitant]
     Active Substance: GRANULOCYTE COLONY-STIMULATING FACTOR NOS
     Indication: Neutropenia
     Dates: start: 20240908, end: 20240908
  93. LEVOFLOXACIN [Concomitant]
     Active Substance: LEVOFLOXACIN
     Indication: Product used for unknown indication
     Route: 042
     Dates: start: 20240908, end: 20240914
  94. URAPIDIL [Concomitant]
     Active Substance: URAPIDIL
     Indication: Product used for unknown indication
     Route: 042
     Dates: start: 20240913, end: 20240915
  95. CLEVIPREX [Concomitant]
     Active Substance: CLEVIDIPINE
     Indication: Hypertension
     Route: 042
     Dates: start: 20230913, end: 20230915
  96. CLEVIPREX [Concomitant]
     Active Substance: CLEVIDIPINE
     Indication: Hypertension
     Route: 042
     Dates: start: 202409
  97. ZOFRAN [Concomitant]
     Active Substance: ONDANSETRON HYDROCHLORIDE
     Indication: Product used for unknown indication
     Route: 042
     Dates: start: 20240913, end: 20240915
  98. AMLODIPINE BESYLATE [Concomitant]
     Active Substance: AMLODIPINE BESYLATE
     Indication: Hypertension
     Dosage: IF RR|}140 UP TO 3 TIMES A DAY
     Route: 048
     Dates: start: 20240914, end: 20240914
  99. AMLODIPINE BESYLATE [Concomitant]
     Active Substance: AMLODIPINE BESYLATE
     Indication: Hypertension
     Route: 048
     Dates: start: 20240910, end: 20240913
  100. AMLODIPINE BESYLATE [Concomitant]
     Active Substance: AMLODIPINE BESYLATE
     Indication: Hypertension
     Route: 048
  101. ACETAMINOPHEN [Concomitant]
     Active Substance: ACETAMINOPHEN
     Indication: Pyrexia
     Route: 042
     Dates: start: 20240907, end: 20240915
  102. Olanib [Concomitant]
     Indication: Product used for unknown indication

REACTIONS (45)
  - Febrile neutropenia [Fatal]
  - General physical health deterioration [Unknown]
  - Febrile neutropenia [Recovered/Resolved]
  - Cardiac failure [Fatal]
  - Neutropenia [Recovered/Resolved]
  - Cerebral haemorrhage [Fatal]
  - Diarrhoea [Recovered/Resolved]
  - Neoplasm progression [Fatal]
  - Neutropenia [Recovered/Resolved]
  - Acute myeloid leukaemia [Fatal]
  - Neutropenia [Recovered/Resolved]
  - Neutropenia [Recovered/Resolved]
  - Neutropenia [Recovered/Resolved]
  - Neutropenia [Recovered/Resolved]
  - Neutropenia [Recovered/Resolved]
  - Neutropenia [Not Recovered/Not Resolved]
  - Infection susceptibility increased [Unknown]
  - Neutropenia [Recovered/Resolved]
  - Neutropenia [Recovered/Resolved]
  - Neutropenia [Recovered/Resolved]
  - Anaemia [Recovered/Resolved]
  - Anaemia [Recovered/Resolved]
  - Anaemia [Recovered/Resolved]
  - Pyrexia [Unknown]
  - Blood test abnormal [Not Recovered/Not Resolved]
  - Thrombocytopenia [Recovered/Resolved]
  - Pancytopenia [Recovered/Resolved]
  - Thrombocytopenia [Recovered/Resolved]
  - Petechiae [Recovered/Resolved]
  - Epistaxis [Recovered/Resolved]
  - Thrombocytopenia [Recovered/Resolved]
  - Gingival bleeding [Recovered/Resolved]
  - Thrombocytopenia [Recovered/Resolved]
  - Dysphagia [Unknown]
  - Rhinitis [Unknown]
  - Periodontitis [Unknown]
  - Anaemia [Recovered/Resolved]
  - Anaemia [Recovered/Resolved]
  - Anaemia [Recovered/Resolved]
  - Penile haemorrhage [Recovered/Resolved]
  - Anaemia [Recovered/Resolved]
  - Anaemia [Recovered/Resolved]
  - Cerebral mass effect [Fatal]
  - Anaemia [Recovered/Resolved]
  - Hypertensive crisis [Fatal]

NARRATIVE: CASE EVENT DATE: 20230909
